FAERS Safety Report 7997205 (Version 4)
Quarter: 2014Q1

REPORT INFORMATION
  Report Type: Spontaneous
  Country: US (occurrence: US)
  Receive Date: 20110620
  Receipt Date: 20140204
  Transmission Date: 20141002
  Serious: Yes (Other)
  Sender: FDA-Public Use
  Company Number: US-PFIZER INC-2011134306

PATIENT
  Age: 64 Year
  Sex: Male
  Weight: 97.51 kg

DRUGS (8)
  1. LYRICA [Suspect]
     Indication: NEURALGIA
     Dosage: 75 MG, DAILY
     Route: 048
     Dates: start: 201106, end: 20110617
  2. LYRICA [Suspect]
     Indication: SLEEP DISORDER
     Dosage: 75 MG, UNK
     Route: 048
  3. VERAPAMIL [Concomitant]
     Indication: HYPERTENSION
     Dosage: 180 MG, DAILY
     Route: 048
  4. ACETYLSALICYLIC ACID [Concomitant]
     Indication: ANTICOAGULANT THERAPY
     Dosage: 325 MG, DAILY
     Route: 048
  5. PRAVASTATIN [Concomitant]
     Indication: BLOOD CHOLESTEROL ABNORMAL
     Dosage: 40 MG, DAILY
     Route: 048
  6. FLONASE [Concomitant]
     Indication: ALLERGIC SINUSITIS
     Dosage: ONE SQUIRT TWO TIMES A DAY
     Route: 045
  7. AZELASTINE HYDROCHLORIDE [Concomitant]
     Indication: ALLERGIC SINUSITIS
     Dosage: ONE SQUIRT TWO TIMES A DAY
     Route: 045
  8. DOCUSATE SODIUM\SENNOSIDES [Concomitant]
     Dosage: UNK

REACTIONS (8)
  - Hypersensitivity [Unknown]
  - Lip swelling [Not Recovered/Not Resolved]
  - Gingival swelling [Not Recovered/Not Resolved]
  - Swollen tongue [Not Recovered/Not Resolved]
  - Local swelling [Not Recovered/Not Resolved]
  - Swelling face [Not Recovered/Not Resolved]
  - Dyspnoea [Unknown]
  - Product packaging issue [Unknown]
